FAERS Safety Report 5513369-1 (Version None)
Quarter: 2007Q4

REPORT INFORMATION
  Report Type: 
  Country: None (occurrence: None)
  Receive Date: 20071112
  Receipt Date: 20071031
  Transmission Date: 20080405
  Serious: Yes (Other)
  Sender: FDA-Public Use
  Company Number: IE-PFIZER INC-2007087220

PATIENT
  Sex: Female
  Weight: 61 kg

DRUGS (7)
  1. ISTIN [Suspect]
     Indication: HYPERTENSION
     Route: 048
     Dates: start: 20061108, end: 20071001
  2. AMITRIPTYLINE HCL [Concomitant]
  3. DETRUSITOL [Concomitant]
  4. ALPRENOLOL [Concomitant]
  5. ACCUPRO [Concomitant]
     Route: 048
  6. ACETYLSALICYLIC ACID SRT [Concomitant]
  7. DALMANE [Concomitant]

REACTIONS (1)
  - ERYTHROMELALGIA [None]
